FAERS Safety Report 7933683-X (Version None)
Quarter: 2011Q4

REPORT INFORMATION
  Report Type: 
  Country: None (occurrence: None)
  Receive Date: 20111122
  Receipt Date: 20111115
  Transmission Date: 20120403
  Serious: Yes (Hospitalization)
  Sender: FDA-Public Use
  Company Number: PHHY2011CA097518

PATIENT
  Sex: Female

DRUGS (3)
  1. CELEXA [Concomitant]
  2. ZOLEDRONOC ACID [Suspect]
     Indication: OSTEOPOROSIS
     Dosage: UNK
     Route: 042
     Dates: start: 20100127
  3. LIPITOR [Concomitant]

REACTIONS (2)
  - FALL [None]
  - FOOT FRACTURE [None]
